FAERS Safety Report 5369228-0 (Version None)
Quarter: 2007Q2

REPORT INFORMATION
  Report Type: 
  Country: None (occurrence: None)
  Receive Date: 20070625
  Receipt Date: 20070618
  Transmission Date: 20071010
  Serious: Yes (Hospitalization)
  Sender: FDA-Public Use
  Company Number: FR-ELI_LILLY_AND_COMPANY-FR200706003739

PATIENT
  Age: 1 Day

DRUGS (4)
  1. ZYPREXA [Suspect]
     Route: 064
     Dates: start: 20070301
  2. RISPERDAL [Concomitant]
     Dosage: UNK, UNK
     Route: 064
     Dates: end: 20070301
  3. LARGACTIL [Concomitant]
     Route: 064
  4. SERESTA [Concomitant]
     Route: 064

REACTIONS (4)
  - ATHETOSIS [None]
  - DRUG EXPOSURE DURING PREGNANCY [None]
  - HYPERTONIA NEONATAL [None]
  - MUSCLE CONTRACTIONS INVOLUNTARY [None]
